FAERS Safety Report 24115612 (Version 1)
Quarter: 2024Q3

REPORT INFORMATION
  Report Type: Spontaneous
  Country: US (occurrence: US)
  Receive Date: 20240721
  Receipt Date: 20240721
  Transmission Date: 20241016
  Serious: No
  Sender: NOVO NORDISK
  Company Number: US-NOVOPROD-1230823

PATIENT
  Sex: Female

DRUGS (1)
  1. WEGOVY [Suspect]
     Active Substance: SEMAGLUTIDE
     Indication: Product used for unknown indication
     Dosage: UNKNOWN
     Route: 058
     Dates: start: 20240509

REACTIONS (6)
  - Pyrexia [Unknown]
  - Thirst [Unknown]
  - Depression [Unknown]
  - Urinary tract infection [Unknown]
  - Asthenia [Unknown]
  - Fatigue [Unknown]
